FAERS Safety Report 4486839-5 (Version None)
Quarter: 2004Q4

REPORT INFORMATION
  Report Type: 
  Country: None (occurrence: None)
  Receive Date: 20041027
  Receipt Date: 20041022
  Transmission Date: 20050328
  Serious: Yes (Hospitalization, Other)
  Sender: FDA-Public Use
  Company Number: US-JNJFOC-20040903736

PATIENT
  Sex: Male
  Weight: 34.02 kg

DRUGS (4)
  1. CONCERTA [Suspect]
     Route: 049
  2. CONCERTA [Suspect]
     Route: 049
  3. CONCERTA [Suspect]
     Route: 049
  4. CONCERTA [Suspect]
     Route: 049

REACTIONS (12)
  - BRAIN NEOPLASM [None]
  - CEREBRAL CYST [None]
  - FACIAL PARESIS [None]
  - FALL [None]
  - GANGLIONEUROMA [None]
  - HEADACHE [None]
  - HEMIPARESIS [None]
  - PERIORBITAL HAEMATOMA [None]
  - PERONEAL NERVE PALSY [None]
  - PSYCHOMOTOR HYPERACTIVITY [None]
  - SIMPLE PARTIAL SEIZURES [None]
  - TONGUE ATROPHY [None]
